FAERS Safety Report 8350527-5 (Version None)
Quarter: 2012Q2

REPORT INFORMATION
  Report Type: 
  Country: None (occurrence: None)
  Receive Date: 20120510
  Receipt Date: 20120501
  Transmission Date: 20120825
  Serious: Yes (Hospitalization)
  Sender: FDA-Public Use
  Company Number: CA-JNJFOC-20120501958

PATIENT
  Sex: Male
  Weight: 96.3 kg

DRUGS (2)
  1. IMURAN [Concomitant]
     Route: 065
  2. REMICADE [Suspect]
     Indication: COLITIS ULCERATIVE
     Dosage: 8 INFUSIONS
     Route: 042

REACTIONS (1)
  - URETERIC STENOSIS [None]
